FAERS Safety Report 26215365 (Version 1)
Quarter: 2025Q4

REPORT INFORMATION
  Report Type: Spontaneous
  Country: JP (occurrence: JP)
  Receive Date: 20251230
  Receipt Date: 20251230
  Transmission Date: 20260118
  Serious: Yes (Hospitalization)
  Sender: MERCK SHARP & DOHME LLC
  Company Number: JP-009507513-2364260

PATIENT
  Sex: Male

DRUGS (4)
  1. KEYTRUDA [Suspect]
     Active Substance: PEMBROLIZUMAB
     Indication: Squamous cell carcinoma of lung
     Dosage: TIME INTERVAL: CYCLICAL: STRENGTH: 100 MG, TOTAL OF 4 CYCLES ADMINISTERED
     Dates: start: 20241029
  2. KEYTRUDA [Suspect]
     Active Substance: PEMBROLIZUMAB
     Indication: Squamous cell carcinoma of lung
     Dosage: TIME INTERVAL: CYCLICAL: STRENGTH: 100 MG, TOTAL OF 6 CYCLES ADMINISTERED
     Dates: start: 20250305
  3. PACLITAXEL [Concomitant]
     Active Substance: PACLITAXEL
     Indication: Squamous cell carcinoma of lung
     Dosage: TIME INTERVAL: CYCLICAL: TOTAL OF 4 CYCLES
     Dates: start: 20241029
  4. CARBOPLATIN [Concomitant]
     Active Substance: CARBOPLATIN
     Indication: Squamous cell carcinoma of lung
     Dosage: TIME INTERVAL: CYCLICAL: TOTAL OF 4 CYCLES
     Dates: start: 20241029

REACTIONS (3)
  - Hepatic enzyme increased [Recovering/Resolving]
  - Immune-mediated cholangitis [Unknown]
  - Hepatic enzyme increased [Recovering/Resolving]

NARRATIVE: CASE EVENT DATE: 20250728
